FAERS Safety Report 23569782 (Version 4)
Quarter: 2025Q3

REPORT INFORMATION
  Report Type: Report from Study
  Country: BR (occurrence: BR)
  Receive Date: 20240227
  Receipt Date: 20250702
  Transmission Date: 20251021
  Serious: Yes (Other)
  Sender: TAKEDA
  Company Number: BR-TAKEDA-2024TUS017785

PATIENT
  Age: 26 Year
  Sex: Female

DRUGS (4)
  1. VEDOLIZUMAB [Suspect]
     Active Substance: VEDOLIZUMAB
     Indication: Colitis ulcerative
  2. MESALAMINE [Suspect]
     Active Substance: MESALAMINE
     Indication: Product used for unknown indication
  3. IRON POLYMALTOSE [Concomitant]
     Active Substance: IRON POLYMALTOSE
     Indication: Anaemia
  4. PREDNISONE [Concomitant]
     Active Substance: PREDNISONE

REACTIONS (7)
  - Dysentery [Not Recovered/Not Resolved]
  - Pulmonary fibrosis [Unknown]
  - Tuberculosis [Unknown]
  - Anaemia [Not Recovered/Not Resolved]
  - Inappropriate schedule of product administration [Unknown]
  - Product availability issue [Unknown]
  - Abdominal pain [Unknown]

NARRATIVE: CASE EVENT DATE: 20231002
